FAERS Safety Report 11397283 (Version 5)
Quarter: 2016Q2

REPORT INFORMATION
  Report Type: Spontaneous
  Country: FR (occurrence: FR)
  Receive Date: 20150819
  Receipt Date: 20160428
  Transmission Date: 20160815
  Serious: Yes (Hospitalization, Other)
  Sender: FDA-Public Use
  Company Number: FR-BRISTOL-MYERS SQUIBB COMPANY-BMS-2015-053394

PATIENT
  Age: 78 Year
  Sex: Male

DRUGS (1)
  1. AXEPIM [Suspect]
     Active Substance: CEFEPIME HYDROCHLORIDE
     Indication: PSEUDOMONAS TEST POSITIVE
     Dosage: 2 G, TID
     Route: 042
     Dates: start: 20150629, end: 20150720

REACTIONS (3)
  - Overdose [Recovering/Resolving]
  - Toxic encephalopathy [Recovering/Resolving]
  - Myoclonus [Unknown]

NARRATIVE: CASE EVENT DATE: 20150706
